FAERS Safety Report 10149260 (Version 1)
Quarter: 2014Q2

REPORT INFORMATION
  Report Type: Spontaneous
  Country: FR (occurrence: FR)
  Receive Date: 20140502
  Receipt Date: 20140502
  Transmission Date: 20141212
  Serious: Yes (Disabling, Other)
  Sender: FDA-Public Use
  Company Number: FR-AMGEN INC.-FRASP2014031679

PATIENT
  Age: 59 Year
  Sex: Female
  Weight: 51 kg

DRUGS (6)
  1. ENBREL [Suspect]
     Indication: RHEUMATOID ARTHRITIS
     Dosage: 50 MG, WEEKLY
     Route: 058
     Dates: start: 201301
  2. ARAVA [Suspect]
     Indication: RHEUMATOID ARTHRITIS
     Dosage: 20 MG, DAILY
     Route: 048
     Dates: start: 201105, end: 201402
  3. PROZAC [Concomitant]
     Indication: DEPRESSION
     Dosage: 20 MG, 2X/DAY
     Route: 048
  4. DOLIPRANE [Concomitant]
     Indication: PAIN
     Dosage: 1 G, 3X/DAY
     Route: 048
  5. VITAMINE A [Concomitant]
     Dosage: UNK
     Dates: start: 20140217
  6. LYSANXIA [Concomitant]
     Indication: ANXIETY
     Dosage: 5 GTT, 3X/DAY
     Route: 048

REACTIONS (3)
  - Visual acuity reduced [Recovering/Resolving]
  - Retinal vein occlusion [Unknown]
  - Retinal oedema [Unknown]
